FAERS Safety Report 6289180-3 (Version None)
Quarter: 2009Q3

REPORT INFORMATION
  Report Type: 
  Country: None (occurrence: None)
  Receive Date: 20090728
  Receipt Date: 20090713
  Transmission Date: 20100115
  Serious: Yes (Hospitalization, Other)
  Sender: FDA-Public Use
  Company Number: VAL_00298_2009

PATIENT
  Age: 44 Year
  Sex: Female

DRUGS (2)
  1. CARBAMAZEPINE [Suspect]
     Indication: MOOD SWINGS
     Dosage: 600 MG, FREQUENCY UNSPECIFIED)
  2. QUETIAPINE FUMARATE [Suspect]
     Indication: DRUG USE FOR UNKNOWN INDICATION
     Dosage: 700 MG

REACTIONS (2)
  - DRUG LEVEL DECREASED [None]
  - NO THERAPEUTIC RESPONSE [None]
